FAERS Safety Report 6610908-4 (Version None)
Quarter: 2010Q1

REPORT INFORMATION
  Report Type: 
  Country: None (occurrence: None)
  Receive Date: 20100222
  Receipt Date: 20100209
  Transmission Date: 20100710
  Serious: Yes (Life-Threatening, Hospitalization)
  Sender: FDA-Public Use
  Company Number: CLOF-1000104

PATIENT
  Age: 61 Year
  Sex: Male

DRUGS (15)
  1. CLOFARABINE OR PLACEBO (CODE NOT BROKEN) [Suspect]
     Indication: ACUTE MYELOID LEUKAEMIA
     Dates: start: 20080219, end: 20080223
  2. CYTARABINE [Suspect]
     Indication: ACUTE MYELOID LEUKAEMIA
     Dosage: INTRAVENOUS
     Route: 042
     Dates: start: 20080219, end: 20080223
  3. ACYCLOVIR [Concomitant]
  4. LEVAQUIN [Concomitant]
  5. PROTONIX [Concomitant]
  6. MORPHINE [Concomitant]
  7. PAXIL [Concomitant]
  8. XANAX [Concomitant]
  9. METOPROLOL TARTRATE [Concomitant]
  10. VORICONAZOLE [Concomitant]
  11. BACTRIM DS [Concomitant]
  12. OXYCODONE (OXYCODONE, PARACETAMOL) [Concomitant]
  13. SENNA-S (DOCUSATE SODIUM, SENNA ALEXANDRINA) [Concomitant]
  14. SYNTHROID [Concomitant]
  15. TRAZODONE HCL [Concomitant]

REACTIONS (10)
  - ATELECTASIS [None]
  - BACTERIAL TEST POSITIVE [None]
  - BRONCHOALVEOLAR LAVAGE ABNORMAL [None]
  - CARDIAC FAILURE CONGESTIVE [None]
  - HYPOTENSION [None]
  - LUNG INFILTRATION [None]
  - NEOPLASM PROGRESSION [None]
  - STAPHYLOCOCCAL BACTERAEMIA [None]
  - STREPTOCOCCAL INFECTION [None]
  - TREATMENT FAILURE [None]
